FAERS Safety Report 14682587 (Version 1)
Quarter: 2018Q1

REPORT INFORMATION
  Report Type: Other
  Country: GB (occurrence: GB)
  Receive Date: 20180327
  Receipt Date: 20180327
  Transmission Date: 20180509
  Serious: No
  Sender: FDA-Public Use
  Company Number: GB-LUPIN PHARMACEUTICALS INC.-2017-07435

PATIENT
  Age: 28 Year
  Sex: Male
  Weight: 48 kg

DRUGS (3)
  1. CARBOMERUM 980 [Concomitant]
     Indication: ILL-DEFINED DISORDER
     Dosage: ONE TO BE TAKEN EACH NIGHT LEFT EYE
     Route: 065
     Dates: start: 20170928, end: 20171012
  2. HYLO TEAR [Concomitant]
     Indication: ILL-DEFINED DISORDER
     Dosage: QDS  BOTH EYES OVER WEEKED
     Route: 065
     Dates: start: 20170928
  3. SERTRALINE [Suspect]
     Active Substance: SERTRALINE HYDROCHLORIDE
     Indication: PRODUCT USED FOR UNKNOWN INDICATION
     Dosage: UNK
     Route: 065
     Dates: start: 20171020

REACTIONS (1)
  - Nausea [Unknown]

NARRATIVE: CASE EVENT DATE: 20171020
